FAERS Safety Report 8006625-9 (Version None)
Quarter: 2011Q4

REPORT INFORMATION
  Report Type: 
  Country: None (occurrence: None)
  Receive Date: 20111227
  Receipt Date: 20111028
  Transmission Date: 20120403
  Serious: No
  Sender: FDA-Public Use
  Company Number: US-BAYER-2011-105364

PATIENT
  Age: 39 Year
  Sex: Female
  Weight: 77.098 kg

DRUGS (1)
  1. AVELOX [Suspect]
     Dosage: UNK

REACTIONS (2)
  - OEDEMA PERIPHERAL [None]
  - RASH MACULAR [None]
